FAERS Safety Report 17899498 (Version 1)
Quarter: 2020Q2

REPORT INFORMATION
  Report Type: Spontaneous
  Country: US (occurrence: US)
  Receive Date: 20200615
  Receipt Date: 20200615
  Transmission Date: 20200714
  Serious: Yes (Disabling)
  Sender: FDA-Public Use
  Company Number: None

PATIENT
  Age: 70 Year
  Sex: Female
  Weight: 90 kg

DRUGS (10)
  1. SYNTHROID [Concomitant]
     Active Substance: LEVOTHYROXINE SODIUM
  2. SLIPPERY ELM [Concomitant]
     Active Substance: ELM
  3. METFORMIN HCL ER 500 MG [Suspect]
     Active Substance: METFORMIN HYDROCHLORIDE
     Indication: DIABETES MELLITUS
     Dosage: ?          QUANTITY:1 TABLET(S);?
     Route: 048
     Dates: start: 20180601, end: 20200614
  4. VITAMIN D [Concomitant]
     Active Substance: VITAMIN D NOS
  5. MAGNESIUM [Concomitant]
     Active Substance: MAGNESIUM
  6. LYMPHATIC PUMP [Concomitant]
  7. ASPIRIN. [Concomitant]
     Active Substance: ASPIRIN
  8. VITAMIN E [Concomitant]
     Active Substance: .ALPHA.-TOCOPHEROL
  9. METFORMIN ER [Concomitant]
     Active Substance: METFORMIN HYDROCHLORIDE
  10. VITAMIN C [Concomitant]
     Active Substance: ASCORBIC ACID

REACTIONS (13)
  - Muscle spasms [None]
  - Headache [None]
  - Asthenia [None]
  - Fatigue [None]
  - Myalgia [None]
  - Tremor [None]
  - Arthralgia [None]
  - Dyspepsia [None]
  - Insomnia [None]
  - Dysphonia [None]
  - Pyrexia [None]
  - Nausea [None]
  - Dysgeusia [None]

NARRATIVE: CASE EVENT DATE: 20200601
